FAERS Safety Report 4808739-0 (Version None)
Quarter: 2005Q4

REPORT INFORMATION
  Report Type: 
  Country: None (occurrence: None)
  Receive Date: 20051021
  Receipt Date: 20051021
  Transmission Date: 20060501
  Serious: Yes (Other)
  Sender: FDA-Public Use
  Company Number: None

PATIENT
  Age: 34 Year
  Sex: Female
  Weight: 78.9259 kg

DRUGS (1)
  1. METFORMIN XR [Suspect]
     Indication: POLYCYSTIC OVARIES
     Dosage: 750MG  3 QD
     Dates: start: 20041112

REACTIONS (4)
  - DRUG INTOLERANCE [None]
  - DYSMENORRHOEA [None]
  - GASTROINTESTINAL DISORDER [None]
  - THERAPEUTIC RESPONSE UNEXPECTED WITH DRUG SUBSTITUTION [None]
